FAERS Safety Report 7516186-6 (Version None)
Quarter: 2011Q2

REPORT INFORMATION
  Report Type: 
  Country: None (occurrence: None)
  Receive Date: 20110601
  Receipt Date: 20110526
  Transmission Date: 20111010
  Serious: Yes (Hospitalization)
  Sender: FDA-Public Use
  Company Number: FR-ROCHE-779545

PATIENT
  Age: 53 Year
  Sex: Male

DRUGS (6)
  1. CEFTRIAXONE [Concomitant]
     Dates: start: 20101029, end: 20101121
  2. CEFTRIAXONE [Concomitant]
     Dates: start: 20110114
  3. METRONIDAZOLE [Concomitant]
     Dates: start: 20101029, end: 20110101
  4. ORNIDAZOLE [Concomitant]
     Dates: start: 20101203, end: 20101209
  5. ROCEPHIN [Suspect]
     Route: 042
     Dates: start: 20101029, end: 20110114
  6. CEFTRIAXONE [Concomitant]
     Dates: start: 20101203, end: 20101209

REACTIONS (1)
  - HEPATITIS CHOLESTATIC [None]
